FAERS Safety Report 9505798 (Version 1)
Quarter: 2013Q1

REPORT INFORMATION
  Report Type: Spontaneous
  Country: FR (occurrence: None)
  Receive Date: 20130225
  Receipt Date: 20130225
  Transmission Date: 20140127
  Serious: Yes (Hospitalization)
  Sender: FDA-Public Use
  Company Number: 2012-176

PATIENT
  Age: 43 Year
  Sex: Male

DRUGS (8)
  1. PRIALT [Suspect]
     Indication: PAIN
     Dates: start: 20100712, end: 20100811
  2. MORPHINE [Suspect]
     Dates: start: 20101212, end: 20100811
  3. NAROPEINE [Suspect]
     Dates: start: 20101019
  4. CLONIDINE HCL [Suspect]
     Indication: PAIN
     Dates: start: 20110511
  5. IMODIUM (LOPERAMIDE HYDROCHLORIDE) [Concomitant]
  6. LASIX (FUROSEMIDE) [Concomitant]
  7. SKENAN(MORPHINE SULFATE) [Concomitant]
  8. ACTISKENAN(MORPHINE SULFATE) [Concomitant]

REACTIONS (2)
  - Hallucination [None]
  - Anxiety [None]
